FAERS Safety Report 15239419 (Version 1)
Quarter: 2018Q3

REPORT INFORMATION
  Report Type: Spontaneous
  Country: IT (occurrence: IT)
  Receive Date: 20180803
  Receipt Date: 20180803
  Transmission Date: 20181010
  Serious: Yes (Other)
  Sender: FDA-Public Use
  Company Number: IT-TEVA-2018-IT-934109

PATIENT
  Age: 1 Year
  Sex: Male

DRUGS (4)
  1. TACHIPIRINA [Concomitant]
     Active Substance: ACETAMINOPHEN
     Indication: FEBRILE CONVULSION
     Route: 054
     Dates: start: 20131217, end: 20131220
  2. BENTELAN [Suspect]
     Active Substance: BETAMETHASONE SODIUM PHOSPHATE
     Indication: INFLAMMATION
     Dosage: .5 MILLIGRAM DAILY;
     Route: 048
     Dates: start: 20131217, end: 20131220
  3. DIAZEPAM. [Suspect]
     Active Substance: DIAZEPAM
     Indication: FEBRILE CONVULSION
     Route: 054
     Dates: start: 20131217, end: 20131217
  4. AUGMENTIN [Suspect]
     Active Substance: AMOXICILLIN\CLAVULANATE POTASSIUM
     Indication: INFECTION
     Dosage: 250 MILLIGRAM DAILY;
     Route: 048
     Dates: start: 20131217, end: 20131225

REACTIONS (2)
  - Faecal vomiting [Recovered/Resolved with Sequelae]
  - Diarrhoea [Recovered/Resolved with Sequelae]

NARRATIVE: CASE EVENT DATE: 20131225
